FAERS Safety Report 5010456-1 (Version None)
Quarter: 2006Q2

REPORT INFORMATION
  Report Type: 
  Country: None (occurrence: None)
  Receive Date: 20060523
  Receipt Date: 20060523
  Transmission Date: 20061013
  Serious: No
  Sender: FDA-Public Use
  Company Number: None

PATIENT
  Age: 66 Year
  Sex: Female

DRUGS (1)
  1. MAGNESIUM [Suspect]
     Dosage: IV
     Route: 042
     Dates: start: 20051220, end: 20051222

REACTIONS (2)
  - BLOOD MAGNESIUM INCREASED [None]
  - DRUG TOXICITY [None]
